FAERS Safety Report 6054887-X (Version None)
Quarter: 2009Q1

REPORT INFORMATION
  Report Type: 
  Country: None (occurrence: None)
  Receive Date: 20090122
  Receipt Date: 20090116
  Transmission Date: 20090719
  Serious: Yes (Hospitalization)
  Sender: FDA-Public Use
  Company Number: 2009SP001201

PATIENT
  Age: 7 Month
  Sex: Male
  Weight: 7.6 kg

DRUGS (2)
  1. BETAMETHASONE [Suspect]
     Indication: LARYNGITIS
     Dosage: ; PO
     Route: 048
  2. BRONCHOKOD (CARBOCISTEINE) [Suspect]
     Indication: LARYNGITIS
     Dosage: 0.5 DF; BID; PO
     Route: 048
     Dates: start: 20081212, end: 20081214

REACTIONS (6)
  - BRONCHIOLITIS [None]
  - DYSPNOEA [None]
  - HYPOPHAGIA [None]
  - NASAL CONGESTION [None]
  - RESPIRATORY DISORDER [None]
  - SELF-MEDICATION [None]
